FAERS Safety Report 8500390-4 (Version None)
Quarter: 2012Q3

REPORT INFORMATION
  Report Type: 
  Country: None (occurrence: None)
  Receive Date: 20120705
  Receipt Date: 20120705
  Transmission Date: 20120928
  Serious: Yes (Hospitalization)
  Sender: FDA-Public Use
  Company Number: None

PATIENT
  Age: 91 Year
  Sex: Male
  Weight: 94 kg

DRUGS (14)
  1. LEVOTHYROXINE SODIUM [Concomitant]
  2. CARVEDILOL [Concomitant]
  3. SIMVASTATIN [Concomitant]
  4. TAMSULOSIN HCL [Concomitant]
  5. FOLIC ACID [Concomitant]
  6. FUROSEMIDE [Concomitant]
  7. MULTI-VITAMIN [Concomitant]
  8. POTASSIUM CHLORIDE [Concomitant]
  9. CLOPIDOGREL [Concomitant]
  10. INSULIN GLARGINE 100 UNITS/ML [Suspect]
     Indication: DIABETES MELLITUS
     Dosage: 62 UNITS QHS SQ PRIOR TO ADMIT
     Route: 058
  11. INSULIN LISPR 100 UNITS/ML [Suspect]
     Indication: DIABETES MELLITUS
     Dosage: 10 UNITS TIDAC SQ PRIOR TO ADMIT
     Route: 058
  12. DONEPEZIL HCL [Concomitant]
  13. MEMANTADINE [Concomitant]
  14. ASPIRIN [Concomitant]

REACTIONS (4)
  - UNRESPONSIVE TO STIMULI [None]
  - BLOOD GLUCOSE DECREASED [None]
  - MENTAL STATUS CHANGES [None]
  - URINARY TRACT INFECTION [None]
